FAERS Safety Report 9430517 (Version 2)
Quarter: 2014Q1

REPORT INFORMATION
  Report Type: Report from Study
  Country: US (occurrence: US)
  Receive Date: 20130730
  Receipt Date: 20140313
  Transmission Date: 20141002
  Serious: Yes (Other)
  Sender: FDA-Public Use
  Company Number: US-GLAXOSMITHKLINE-Z0018284D

PATIENT
  Age: 56 Year
  Sex: Male
  Weight: 105.9 kg

DRUGS (4)
  1. DABRAFENIB [Suspect]
     Indication: MALIGNANT MELANOMA
     Dosage: 150MG TWICE PER DAY
     Route: 048
     Dates: start: 20121015
  2. PLACEBO [Suspect]
     Indication: MALIGNANT MELANOMA
     Dosage: 2MG PER DAY
     Route: 048
     Dates: start: 20121015
  3. LIDOCAINE WITH EPINEPHRINE [Concomitant]
     Indication: PREMEDICATION
     Dosage: .45PCT SINGLE DOSE
     Route: 058
     Dates: start: 20130710, end: 20130710
  4. BACTROBAN [Concomitant]
     Indication: INFECTION PROPHYLAXIS
     Dosage: 1UNIT SINGLE DOSE
     Route: 061
     Dates: start: 20130710, end: 20130710

REACTIONS (1)
  - Basal cell carcinoma [Recovered/Resolved]
